FAERS Safety Report 23459484 (Version 10)
Quarter: 2024Q3

REPORT INFORMATION
  Report Type: Report from Study
  Country: US (occurrence: US)
  Receive Date: 20240131
  Receipt Date: 20240805
  Transmission Date: 20241016
  Serious: Yes (Death, Hospitalization, Other)
  Sender: SANDOZ
  Company Number: US-002147023-NVSC2023US035247

PATIENT
  Age: 69 Year
  Sex: Male
  Weight: 78.685 kg

DRUGS (8)
  1. TREPROSTINIL [Suspect]
     Active Substance: TREPROSTINIL
     Dosage: 20 NG/KG/ MIN
     Route: 042
     Dates: start: 20230131
  2. TREPROSTINIL [Suspect]
     Active Substance: TREPROSTINIL
     Indication: Pulmonary arterial hypertension
     Dosage: UNK, CONT (7 NG/KG/MIN)
     Route: 042
     Dates: start: 20230131
  3. TREPROSTINIL [Suspect]
     Active Substance: TREPROSTINIL
     Indication: Pulmonary arterial hypertension
     Dosage: UNK, CONT (11.5 NG/KG/MIN)
     Route: 042
  4. TREPROSTINIL [Suspect]
     Active Substance: TREPROSTINIL
     Dosage: 20 NG/KG/MIN
     Route: 042
  5. TREPROSTINIL [Suspect]
     Active Substance: TREPROSTINIL
     Dosage: 20 NG/KG/ MIN
     Route: 042
  6. AMBRISENTAN [Concomitant]
     Active Substance: AMBRISENTAN
     Indication: Product used for unknown indication
     Dosage: UNK
     Route: 065
  7. TREPROSTINIL [Concomitant]
     Active Substance: TREPROSTINIL
     Indication: Product used for unknown indication
     Dosage: UNK
     Route: 065
  8. XARELTO [Concomitant]
     Active Substance: RIVAROXABAN
     Indication: Product used for unknown indication
     Dosage: UNK
     Route: 065

REACTIONS (17)
  - Death [Fatal]
  - Cardiac failure acute [Unknown]
  - Urinary tract infection [Unknown]
  - Complication associated with device [Unknown]
  - Malaise [Unknown]
  - Diarrhoea [Unknown]
  - Scleroderma [Unknown]
  - Hospitalisation [Unknown]
  - Catheter site pruritus [Unknown]
  - Raynaud^s phenomenon [Unknown]
  - Gout [Unknown]
  - Epistaxis [Unknown]
  - Dyspnoea [Unknown]
  - Infusion site pain [Unknown]
  - Infusion site pruritus [Unknown]
  - Fluid retention [Unknown]
  - Arthralgia [Unknown]

NARRATIVE: CASE EVENT DATE: 20240726
